FAERS Safety Report 7297964-8 (Version None)
Quarter: 2011Q1

REPORT INFORMATION
  Report Type: 
  Country: None (occurrence: None)
  Receive Date: 20110217
  Receipt Date: 20110209
  Transmission Date: 20110831
  Serious: Yes (Hospitalization)
  Sender: FDA-Public Use
  Company Number: US-US-EMD SERONO, INC.-7041471

PATIENT
  Sex: Female

DRUGS (1)
  1. REBIF [Suspect]
     Indication: MULTIPLE SCLEROSIS
     Route: 058
     Dates: start: 20090227

REACTIONS (7)
  - VISUAL IMPAIRMENT [None]
  - INJECTION SITE PRURITUS [None]
  - MULTIPLE SCLEROSIS RELAPSE [None]
  - PANCREATITIS [None]
  - TREMOR [None]
  - HEPATIC STEATOSIS [None]
  - INJECTION SITE ERYTHEMA [None]
